FAERS Safety Report 25096131 (Version 1)
Quarter: 2025Q1

REPORT INFORMATION
  Report Type: Spontaneous
  Country: SI (occurrence: SI)
  Receive Date: 20250319
  Receipt Date: 20250319
  Transmission Date: 20250408
  Serious: Yes (Other)
  Sender: BAYER HEALTHCARE PHARMACEUTICALS INC.
  Company Number: SI-BAYER-2025A037161

PATIENT
  Age: 66 Year
  Sex: Male

DRUGS (1)
  1. ULTRAVIST [Suspect]
     Active Substance: IOPROMIDE
     Dates: start: 20250114, end: 20250114

REACTIONS (5)
  - Oxygen saturation decreased [None]
  - Hypotension [None]
  - Pruritus [None]
  - Erythema [None]
  - Heart rate increased [None]

NARRATIVE: CASE EVENT DATE: 20250114
